FAERS Safety Report 7166422-3 (Version None)
Quarter: 2010Q4

REPORT INFORMATION
  Report Type: 
  Country: None (occurrence: None)
  Receive Date: 20101216
  Receipt Date: 20101202
  Transmission Date: 20110411
  Serious: Yes (Hospitalization, Other)
  Sender: FDA-Public Use
  Company Number: PHHY2008AU24911

PATIENT
  Sex: Female

DRUGS (4)
  1. CLOZARIL [Suspect]
     Dosage: 450 MG
     Dates: start: 20040830
  2. CLOZARIL [Suspect]
     Dosage: 325 MG
  3. CLOZARIL [Suspect]
     Dosage: 125 MG
  4. CLOZARIL [Suspect]
     Dosage: 100 MG MORNING, 125 MG NIGHT

REACTIONS (4)
  - CHRONIC OBSTRUCTIVE PULMONARY DISEASE [None]
  - LOWER RESPIRATORY TRACT INFECTION [None]
  - PNEUMONIA [None]
  - TERTIARY SYPHILIS [None]
